FAERS Safety Report 18581432 (Version 1)
Quarter: 2020Q4

REPORT INFORMATION
  Report Type: Spontaneous
  Country: US (occurrence: US)
  Receive Date: 20201204
  Receipt Date: 20201204
  Transmission Date: 20210114
  Serious: Yes (Hospitalization)
  Sender: FDA-Public Use
  Company Number: US-MYLANLABS-2020M1099588

PATIENT
  Age: 33 Year
  Sex: Male

DRUGS (4)
  1. WARFARIN [Interacting]
     Active Substance: WARFARIN
     Dosage: 15 MILLIGRAM, QD
     Route: 048
  2. WARFARIN [Suspect]
     Active Substance: WARFARIN
     Indication: ANTICOAGULANT THERAPY
     Dosage: INITIAL DOSE UNKNOWN
     Route: 048
  3. WARFARIN [Interacting]
     Active Substance: WARFARIN
     Dosage: 30 MILLIGRAM, QD
     Route: 048
  4. WARFARIN [Interacting]
     Active Substance: WARFARIN
     Dosage: 20 MILLIGRAM, QD
     Route: 048

REACTIONS (3)
  - Anticoagulation drug level below therapeutic [Unknown]
  - Drug resistance [Recovered/Resolved]
  - Food interaction [Unknown]

NARRATIVE: CASE EVENT DATE: 201910
